FAERS Safety Report 8277744-7 (Version None)
Quarter: 2012Q2

REPORT INFORMATION
  Report Type: 
  Country: None (occurrence: None)
  Receive Date: 20120412
  Receipt Date: 20120405
  Transmission Date: 20120825
  Serious: Yes (Other)
  Sender: FDA-Public Use
  Company Number: JP-PFIZER INC-2012065272

PATIENT
  Age: 80 Year
  Sex: Female

DRUGS (8)
  1. LYRICA [Suspect]
     Indication: POST HERPETIC NEURALGIA
     Dosage: 75MG, DAILY
     Route: 048
  2. CANDESARTAN CILEXETIL [Concomitant]
  3. HANGE-SHASHIN-TO [Concomitant]
  4. MECOBALAMIN [Concomitant]
  5. ROHYPNOL [Concomitant]
  6. ADALAT CC [Concomitant]
  7. MAGMITT [Concomitant]
  8. GASMOTIN [Concomitant]

REACTIONS (1)
  - PLEURAL EFFUSION [None]
